FAERS Safety Report 25352181 (Version 2)
Quarter: 2025Q3

REPORT INFORMATION
  Report Type: Spontaneous
  Country: US (occurrence: US)
  Receive Date: 20250523
  Receipt Date: 20250708
  Transmission Date: 20251020
  Serious: No
  Sender: Kenvue
  Company Number: US-KENVUE-20250505961

PATIENT
  Sex: Female

DRUGS (8)
  1. MENS ROGAINE EXTRA STRENGTH [Suspect]
     Active Substance: MINOXIDIL
     Indication: Alopecia
     Dosage: 5 MILLIGRAM, A CAPFUL , TWICE A DAY
     Route: 061
     Dates: start: 20250424
  2. TOPROL XL [Concomitant]
     Active Substance: METOPROLOL SUCCINATE
     Indication: Cardiac disorder
     Route: 065
  3. ELIQUIS [Concomitant]
     Active Substance: APIXABAN
     Indication: Blood pressure measurement
     Route: 065
  4. ELIQUIS [Concomitant]
     Active Substance: APIXABAN
     Indication: Thrombosis
  5. LOSARTAN [Concomitant]
     Active Substance: LOSARTAN
     Indication: Blood pressure measurement
     Route: 065
  6. LOSARTAN [Concomitant]
     Active Substance: LOSARTAN
     Indication: Thrombosis
  7. SIMVASTATIN [Concomitant]
     Active Substance: SIMVASTATIN
     Indication: Blood pressure measurement
     Route: 065
  8. SIMVASTATIN [Concomitant]
     Active Substance: SIMVASTATIN
     Indication: Thrombosis

REACTIONS (6)
  - Product use issue [Unknown]
  - Intentional product misuse [Unknown]
  - Application site pruritus [Recovering/Resolving]
  - Trichorrhexis [Recovering/Resolving]
  - Alopecia [Unknown]
  - Overdose [Unknown]

NARRATIVE: CASE EVENT DATE: 20250101
